FAERS Safety Report 10213850 (Version 1)
Quarter: 2014Q2

REPORT INFORMATION
  Report Type: Spontaneous
  Country: US (occurrence: None)
  Receive Date: 20140602
  Receipt Date: 20140602
  Transmission Date: 20141212
  Serious: Yes (Other)
  Sender: FDA-Public Use
  Company Number: None

PATIENT
  Age: 64 Year
  Sex: Female
  Weight: 45.36 kg

DRUGS (1)
  1. BONIVA 150MG GENENTECH [Suspect]
     Indication: OSTEOPOROSIS
     Dosage: BONIVA 150 MG ONCE A MONTH TAKEN BY MOUTH
     Route: 048
     Dates: start: 20140301, end: 20140531

REACTIONS (4)
  - Arthralgia [None]
  - Ocular hyperaemia [None]
  - Eye pain [None]
  - Eye swelling [None]
